FAERS Safety Report 7055340-7 (Version None)
Quarter: 2010Q4

REPORT INFORMATION
  Report Type: 
  Country: None (occurrence: None)
  Receive Date: 20101019
  Receipt Date: 20101019
  Transmission Date: 20110411
  Serious: Yes (Death)
  Sender: FDA-Public Use
  Company Number: None

PATIENT
  Age: 73 Year
  Sex: Male
  Weight: 130 kg

DRUGS (1)
  1. VANCOMYCIN [Suspect]
     Dosage: 1.5  GRAM  IV
     Route: 042
     Dates: start: 20100625, end: 20100625

REACTIONS (5)
  - CARDIO-RESPIRATORY ARREST [None]
  - DYSPNOEA [None]
  - PRURITUS [None]
  - RASH [None]
  - UNRESPONSIVE TO STIMULI [None]
